FAERS Safety Report 7508636-6 (Version None)
Quarter: 2011Q2

REPORT INFORMATION
  Report Type: 
  Country: None (occurrence: None)
  Receive Date: 20110527
  Receipt Date: 20100402
  Transmission Date: 20111010
  Serious: No
  Sender: FDA-Public Use
  Company Number: A0853217A

PATIENT
  Age: 45 Year
  Sex: Male

DRUGS (2)
  1. PREDNISONE [Concomitant]
  2. VENTOLIN [Suspect]
     Indication: BRONCHITIS
     Dosage: 1PUFF THREE TIMES PER DAY
     Route: 055
     Dates: start: 20100301

REACTIONS (3)
  - PRODUCTIVE COUGH [None]
  - DRUG INEFFECTIVE [None]
  - BRONCHITIS [None]
